FAERS Safety Report 6269557-2 (Version None)
Quarter: 2009Q3

REPORT INFORMATION
  Report Type: 
  Country: None (occurrence: None)
  Receive Date: 20090715
  Receipt Date: 20090706
  Transmission Date: 20100115
  Serious: Yes (Hospitalization, Other)
  Sender: FDA-Public Use
  Company Number: ZA-GILEAD-2009-0022954

PATIENT
  Age: 29 Year
  Sex: Female
  Weight: 77.9 kg

DRUGS (3)
  1. TRUVADA [Suspect]
     Indication: HIV INFECTION
     Route: 048
     Dates: start: 20060720, end: 20090203
  2. ALUVIA [Suspect]
     Indication: HIV INFECTION
     Route: 048
     Dates: start: 20060720, end: 20090522
  3. COMBIVIR [Suspect]
     Indication: HIV INFECTION
     Route: 048
     Dates: start: 20090203, end: 20090601

REACTIONS (1)
  - INTRA-UTERINE DEATH [None]
